FAERS Safety Report 12951016 (Version 2)
Quarter: 2016Q4

REPORT INFORMATION
  Report Type: Spontaneous
  Country: US (occurrence: US)
  Receive Date: 20161117
  Receipt Date: 20161124
  Transmission Date: 20170207
  Serious: No
  Sender: FDA-Public Use
  Company Number: US-HORIZON-VIM-0242-2016

PATIENT
  Age: 33 Year
  Sex: Male

DRUGS (1)
  1. VIMOVO [Suspect]
     Active Substance: ESOMEPRAZOLE MAGNESIUM\NAPROXEN
     Indication: INFLAMMATION
     Dosage: 1 DF BID
     Route: 048
     Dates: start: 201606

REACTIONS (3)
  - Drug screen false positive [Unknown]
  - Off label use [Unknown]
  - Accident at work [Unknown]
